FAERS Safety Report 23075683 (Version 1)
Quarter: 2023Q4

REPORT INFORMATION
  Report Type: Spontaneous
  Country: MA (occurrence: MA)
  Receive Date: 20231017
  Receipt Date: 20231017
  Transmission Date: 20240110
  Serious: Yes (Other)
  Sender: FDA-Public Use
  Company Number: MA-GLAXOSMITHKLINE-MA2023EME140307

PATIENT

DRUGS (2)
  1. VENTOLIN [Suspect]
     Active Substance: ALBUTEROL SULFATE
     Indication: Product used for unknown indication
     Dosage: UNK
     Route: 064
  2. FOLIC ACID [Suspect]
     Active Substance: FOLIC ACID
     Indication: Product used for unknown indication
     Dosage: UNK
     Route: 064

REACTIONS (7)
  - Encephalocele [Unknown]
  - Meningocele [Unknown]
  - Cerebellar atrophy [Unknown]
  - Cerebral ventricle dilatation [Unknown]
  - Renal mass [Unknown]
  - Foetal exposure during pregnancy [Unknown]
  - Premature baby [Unknown]
